FAERS Safety Report 6733014-7 (Version None)
Quarter: 2010Q2

REPORT INFORMATION
  Report Type: 
  Country: None (occurrence: None)
  Receive Date: 20100517
  Receipt Date: 20100428
  Transmission Date: 20101027
  Serious: Yes (Other)
  Sender: FDA-Public Use
  Company Number: 2010US001160

PATIENT
  Age: 50 Year
  Sex: Male

DRUGS (13)
  1. AMBISOME [Suspect]
     Indication: SYSTEMIC MYCOSIS
     Dosage: 50 MG, UID/QD/ IV DRIP
     Route: 041
     Dates: start: 20090206, end: 20090212
  2. AMBISOME [Suspect]
     Indication: SYSTEMIC MYCOSIS
     Dosage: 50 MG, UID/QD/ IV DRIP
     Route: 041
     Dates: start: 20090213, end: 20090301
  3. AMBISOME [Suspect]
     Indication: SYSTEMIC MYCOSIS
     Dosage: 50 MG, UID/QD/ IV DRIP
     Route: 041
     Dates: start: 20090306, end: 20090426
  4. AMBISOME [Suspect]
     Indication: SYSTEMIC MYCOSIS
     Dosage: 50 MG, UID/QD/ IV DRIP
     Route: 041
     Dates: start: 20090428, end: 20090505
  5. AMBISOME [Suspect]
     Indication: SYSTEMIC MYCOSIS
     Dosage: 50 MG, UID/QD/ IV DRIP
     Route: 041
     Dates: start: 20100310, end: 20100321
  6. AMBISOME [Suspect]
     Indication: SYSTEMIC MYCOSIS
     Dosage: 50 MG, UID/QD/ IV DRIP
     Route: 041
     Dates: start: 20090801
  7. ZANTAC 150 [Concomitant]
  8. RED BLOOD CELLS [Concomitant]
  9. PRIMAXIN [Concomitant]
  10. MINOCIN [Concomitant]
  11. OMEPRAZOLE [Concomitant]
  12. PIPERACILLIN SODIUM [Concomitant]
  13. UNASYN (AMPICILLIN SODIUM, SULBACTAM SODIUM) [Concomitant]

REACTIONS (4)
  - DYSPNOEA [None]
  - GASTROINTESTINAL HAEMORRHAGE [None]
  - GENERAL PHYSICAL HEALTH DETERIORATION [None]
  - PANCYTOPENIA [None]
